FAERS Safety Report 9373989 (Version 1)
Quarter: 2013Q2

REPORT INFORMATION
  Report Type: Spontaneous
  Country: US (occurrence: None)
  Receive Date: 20130627
  Receipt Date: 20130627
  Transmission Date: 20140414
  Serious: No
  Sender: FDA-Public Use
  Company Number: None

PATIENT
  Sex: Female
  Weight: 122.47 kg

DRUGS (1)
  1. IMITREX [Suspect]
     Indication: MIGRAINE
     Dosage: 50 MG 1 Q 2 HRS PO
     Route: 048
     Dates: start: 20120620

REACTIONS (3)
  - Drug ineffective [None]
  - Product substitution issue [None]
  - Impaired work ability [None]
